FAERS Safety Report 6040937-3 (Version None)
Quarter: 2009Q1

REPORT INFORMATION
  Report Type: 
  Country: None (occurrence: None)
  Receive Date: 20090116
  Receipt Date: 20080702
  Transmission Date: 20090719
  Serious: No
  Sender: FDA-Public Use
  Company Number: PR-BRISTOL-MYERS SQUIBB COMPANY-14248439

PATIENT
  Age: 29 Year
  Sex: Female

DRUGS (3)
  1. ABILIFY [Suspect]
     Indication: BIPOLAR DISORDER
     Dosage: TAKEN 3 MONTHS AGO
     Dates: start: 20080101
  2. DEPAKOTE [Concomitant]
  3. TEMAZEPAM [Concomitant]

REACTIONS (1)
  - ALOPECIA [None]
